FAERS Safety Report 7086125-3 (Version None)
Quarter: 2010Q4

REPORT INFORMATION
  Report Type: 
  Country: None (occurrence: None)
  Receive Date: 20101105
  Receipt Date: 20101028
  Transmission Date: 20110411
  Serious: Yes (Hospitalization, Other)
  Sender: FDA-Public Use
  Company Number: B0681656A

PATIENT
  Sex: Female

DRUGS (4)
  1. ZOPHREN [Suspect]
     Indication: PRODUCT USED FOR UNKNOWN INDICATION
     Route: 042
     Dates: start: 20100722, end: 20100722
  2. OXALIPLATINE [Suspect]
     Route: 042
     Dates: start: 20100722, end: 20100722
  3. LEVOFOLINIC ACID [Suspect]
     Route: 042
     Dates: start: 20100722, end: 20100722
  4. SOLU-MEDROL [Concomitant]
     Route: 042
     Dates: start: 20100722, end: 20100722

REACTIONS (9)
  - ABDOMINAL PAIN [None]
  - COLON CANCER [None]
  - HYPERTENSION [None]
  - MALIGNANT NEOPLASM PROGRESSION [None]
  - METASTASES TO LIVER [None]
  - NAUSEA [None]
  - OCULAR HYPERAEMIA [None]
  - PRURITUS [None]
  - VOMITING [None]
